FAERS Safety Report 25645017 (Version 1)
Quarter: 2025Q3

REPORT INFORMATION
  Report Type: Spontaneous
  Country: US (occurrence: CN)
  Receive Date: 20250805
  Receipt Date: 20250805
  Transmission Date: 20251020
  Serious: Yes (Hospitalization, Other)
  Sender: MERCK SHARP & DOHME LLC
  Company Number: US-009507513-2314625

PATIENT
  Age: 72 Year
  Sex: Male

DRUGS (1)
  1. KEYTRUDA [Suspect]
     Active Substance: PEMBROLIZUMAB
     Indication: Rectal cancer metastatic
     Route: 042
     Dates: start: 202411, end: 20250415

REACTIONS (6)
  - Pulmonary function test decreased [Unknown]
  - Inflammation [Unknown]
  - Deafness [Unknown]
  - Cough [Recovering/Resolving]
  - Hypopituitarism [Unknown]
  - Dyspnoea [Unknown]

NARRATIVE: CASE EVENT DATE: 20241101
